FAERS Safety Report 5941243-5 (Version None)
Quarter: 2008Q4

REPORT INFORMATION
  Report Type: 
  Country: None (occurrence: None)
  Receive Date: 20081104
  Receipt Date: 20081104
  Transmission Date: 20090506
  Serious: Yes (Other)
  Sender: FDA-Public Use
  Company Number: None

PATIENT
  Age: 20 Year
  Sex: Female
  Weight: 60.782 kg

DRUGS (2)
  1. SEASONALE [Suspect]
     Indication: PREMATURE MENOPAUSE
     Dosage: QDAY
     Dates: start: 20080901, end: 20081001
  2. PROVERA [Concomitant]

REACTIONS (2)
  - PAIN [None]
  - RASH PAPULAR [None]
